FAERS Safety Report 9238703 (Version 1)
Quarter: 2013Q2

REPORT INFORMATION
  Report Type: Spontaneous
  Country: US (occurrence: None)
  Receive Date: 20130417
  Receipt Date: 20130417
  Transmission Date: 20140414
  Serious: Yes (Other)
  Sender: FDA-Public Use
  Company Number: None

PATIENT
  Age: 84 Year
  Sex: Male

DRUGS (9)
  1. ZYTIGA 250MG JANSSEN BIOTECH [Suspect]
     Indication: PROSTATE CANCER
     Dosage: 1000MG QD PO
     Route: 048
     Dates: start: 20130305, end: 20130415
  2. LEVOTHYROXINE [Concomitant]
  3. GABAPENTIN [Concomitant]
  4. PREDNISONE [Concomitant]
  5. ASPIRIN [Concomitant]
  6. CENTRUM [Concomitant]
  7. RANITIDINE [Concomitant]
  8. LOSARTAN [Concomitant]
  9. FISH OIL [Concomitant]

REACTIONS (1)
  - Prostatic specific antigen increased [None]
